FAERS Safety Report 9357032 (Version 4)
Quarter: 2013Q3

REPORT INFORMATION
  Report Type: Spontaneous
  Country: GB (occurrence: GB)
  Receive Date: 20130620
  Receipt Date: 20130731
  Transmission Date: 20140515
  Serious: Yes (Other)
  Sender: FDA-Public Use
  Company Number: GB-AMGEN-GBRSP2013042683

PATIENT
  Age: 82 Year
  Sex: Female

DRUGS (3)
  1. PROLIA [Suspect]
     Indication: OSTEOPOROSIS
     Dosage: 60 MG, Q6MO
     Route: 058
     Dates: start: 20120601, end: 20121203
  2. CALCEOS [Concomitant]
     Route: 048
  3. PARACETAMOL [Concomitant]
     Route: 048

REACTIONS (6)
  - Dyspnoea [Recovered/Resolved]
  - Skin ulcer [Not Recovered/Not Resolved]
  - Venous insufficiency [Unknown]
  - Impaired healing [Not Recovered/Not Resolved]
  - Respiratory disorder [Not Recovered/Not Resolved]
  - Oedema [Unknown]
